FAERS Safety Report 26025387 (Version 1)
Quarter: 2025Q4

REPORT INFORMATION
  Report Type: Spontaneous
  Country: MX (occurrence: MX)
  Receive Date: 20251111
  Receipt Date: 20251111
  Transmission Date: 20260119
  Serious: Yes (Other)
  Sender: SANDOZ
  Company Number: MX-002147023-NVSC2025MX173028

PATIENT
  Age: 88 Year
  Sex: Female

DRUGS (1)
  1. EXELON [Suspect]
     Active Substance: RIVASTIGMINE TARTRATE
     Indication: Product used for unknown indication
     Dosage: 1 DOSAGE FORM, QD (EXELON PARCHE 5  (RIVASTIGMINE) PATCH, EXTENDED RELEASE)
     Route: 062
     Dates: start: 202506

REACTIONS (6)
  - Hip fracture [Unknown]
  - Hallucination, visual [Unknown]
  - Fall [Unknown]
  - Psychotic disorder [Unknown]
  - Fear [Unknown]
  - Vein disorder [Unknown]
